FAERS Safety Report 7189026-5 (Version None)
Quarter: 2010Q4

REPORT INFORMATION
  Report Type: 
  Country: None (occurrence: None)
  Receive Date: 20101222
  Receipt Date: 20100731
  Transmission Date: 20110411
  Serious: No
  Sender: FDA-Public Use
  Company Number: US-AMGEN-KDL428407

PATIENT

DRUGS (1)
  1. ENBREL [Suspect]
     Indication: RHEUMATOID ARTHRITIS
     Dosage: 50 MG, QWK
     Route: 058
     Dates: start: 20100501

REACTIONS (6)
  - DRY MOUTH [None]
  - DRY THROAT [None]
  - EXPOSURE TO COMMUNICABLE DISEASE [None]
  - HEADACHE [None]
  - PHARYNGITIS STREPTOCOCCAL [None]
  - SWOLLEN TONGUE [None]
